FAERS Safety Report 9840270 (Version 1)
Quarter: 2014Q1

REPORT INFORMATION
  Report Type: Spontaneous
  Country: US (occurrence: US)
  Receive Date: 20140124
  Receipt Date: 20140124
  Transmission Date: 20141002
  Serious: Yes (Hospitalization)
  Sender: FDA-Public Use
  Company Number: US-JNJFOC-20140108279

PATIENT
  Age: 70 Year
  Sex: Female
  Weight: 63 kg

DRUGS (11)
  1. DOXORUBICIN HYDROCHLORIDE [Suspect]
     Indication: OVARIAN CANCER
     Route: 042
     Dates: start: 20130723
  2. EC20 [Suspect]
     Indication: SINGLE PHOTON EMISSION COMPUTERISED TOMOGRAM
     Route: 042
     Dates: start: 20130711, end: 20130711
  3. FOLIC ACID [Suspect]
     Indication: SINGLE PHOTON EMISSION COMPUTERISED TOMOGRAM
     Route: 042
     Dates: start: 20130711, end: 20130711
  4. EC145 [Suspect]
     Indication: OVARIAN CANCER
     Dosage: MONDAY-WEDNESDAY-FRIDAY EVERY OTHER WEEK
     Route: 042
     Dates: start: 20130723
  5. PLACEBO [Suspect]
     Indication: OVARIAN CANCER
     Dosage: MONDAY-WEDNESDAY-FRIDAY EVERY OTHER WEEK
     Route: 042
     Dates: start: 20130723
  6. ACETAMINOPHEN [Concomitant]
     Indication: PAIN
     Route: 065
  7. DOCUSATE [Concomitant]
     Indication: CONSTIPATION
     Route: 065
  8. ZOFRAN [Concomitant]
     Indication: NAUSEA
     Route: 065
     Dates: start: 2011
  9. OXYCODONE [Concomitant]
     Indication: PAIN
     Route: 065
     Dates: start: 2013
  10. GUAIFENESIN [Concomitant]
     Route: 065
     Dates: start: 201310, end: 20131023
  11. COMPAZINE [Concomitant]
     Indication: NAUSEA
     Route: 065
     Dates: start: 2013

REACTIONS (3)
  - Mental status changes [Not Recovered/Not Resolved]
  - Dizziness [Not Recovered/Not Resolved]
  - Headache [Not Recovered/Not Resolved]
